FAERS Safety Report 24928336 (Version 2)
Quarter: 2025Q1

REPORT INFORMATION
  Report Type: Other
  Country: CA (occurrence: CA)
  Receive Date: 20250205
  Receipt Date: 20250305
  Transmission Date: 20250409
  Serious: Yes (Hospitalization)
  Sender: APOTEX
  Company Number: CA-APOTEX-2025AP001697

PATIENT
  Age: 19 Year
  Sex: Male
  Weight: 63 kg

DRUGS (18)
  1. CLOZAPINE [Interacting]
     Active Substance: CLOZAPINE
     Indication: Psychiatric care
     Route: 065
  2. CLOZAPINE [Interacting]
     Active Substance: CLOZAPINE
     Dosage: 100 MILLIGRAM, QD
     Route: 048
  3. CLOZAPINE [Interacting]
     Active Substance: CLOZAPINE
     Dosage: 2.5 MILLILITER, QD
     Route: 048
  4. QUETIAPINE [Interacting]
     Active Substance: QUETIAPINE
     Indication: Psychiatric care
     Dosage: 450 MILLIGRAM, QD
     Route: 048
  5. QUETIAPINE [Interacting]
     Active Substance: QUETIAPINE
     Dosage: 500 MILLIGRAM, QD
     Route: 048
  6. QUETIAPINE [Interacting]
     Active Substance: QUETIAPINE
     Dosage: 100 MILLIGRAM, QD
     Route: 048
  7. QUETIAPINE [Interacting]
     Active Substance: QUETIAPINE
     Dosage: 400 MILLIGRAM, QD
     Route: 048
  8. FLUVOXAMINE [Interacting]
     Active Substance: FLUVOXAMINE
     Indication: Psychiatric care
     Dosage: 50 MILLIGRAM, QD
     Route: 048
  9. FLUVOXAMINE [Interacting]
     Active Substance: FLUVOXAMINE
     Dosage: 12.5 MILLIGRAM, QD
     Route: 048
  10. LORAZEPAM [Interacting]
     Active Substance: LORAZEPAM
     Indication: Agitation
     Dosage: UNK, Q.6H
     Route: 048
  11. PROPRANOLOL [Interacting]
     Active Substance: PROPRANOLOL HYDROCHLORIDE
     Indication: Product used for unknown indication
     Dosage: 10 MILLIGRAM, Q.12H
     Route: 048
  12. LOXAPINE [Interacting]
     Active Substance: LOXAPINE
     Indication: Agitation
     Dosage: UNK, Q.6H
     Route: 048
  13. LORAZEPAM [Interacting]
     Active Substance: LORAZEPAM
     Indication: Agitation
     Dosage: UNK, Q.6H
     Route: 030
  14. LOXAPINE SUCCINATE [Interacting]
     Active Substance: LOXAPINE SUCCINATE
     Indication: Agitation
     Dosage: UNK, Q.6H
     Route: 048
  15. BENZTROPINE MESYLATE [Interacting]
     Active Substance: BENZTROPINE MESYLATE
     Indication: Extrapyramidal disorder
     Route: 048
  16. BENZTROPINE MESYLATE [Interacting]
     Active Substance: BENZTROPINE MESYLATE
     Indication: Extrapyramidal disorder
     Dosage: UNK, TID
     Route: 030
  17. BREXPIPRAZOLE [Concomitant]
     Active Substance: BREXPIPRAZOLE
     Indication: Psychiatric care
     Dosage: 1 MILLIGRAM, QD
     Route: 048
  18. CLEARLAX [Concomitant]
     Active Substance: POLYETHYLENE GLYCOL 3350
     Indication: Product used for unknown indication
     Dosage: 17 GRAM, QD
     Route: 048

REACTIONS (16)
  - Condition aggravated [Not Recovered/Not Resolved]
  - Confusional state [Not Recovered/Not Resolved]
  - Depression [Not Recovered/Not Resolved]
  - Drug interaction [Not Recovered/Not Resolved]
  - Dysphemia [Not Recovered/Not Resolved]
  - Fatigue [Not Recovered/Not Resolved]
  - Hypoaesthesia [Not Recovered/Not Resolved]
  - Memory impairment [Not Recovered/Not Resolved]
  - Mental disorder [Not Recovered/Not Resolved]
  - Thinking abnormal [Not Recovered/Not Resolved]
  - Treatment noncompliance [Not Recovered/Not Resolved]
  - Constipation [Not Recovered/Not Resolved]
  - Sedation [Not Recovered/Not Resolved]
  - Somnolence [Not Recovered/Not Resolved]
  - Drug level below therapeutic [Not Recovered/Not Resolved]
  - Drug level decreased [Not Recovered/Not Resolved]
